FAERS Safety Report 10314329 (Version 2)
Quarter: 2014Q3

REPORT INFORMATION
  Report Type: Spontaneous
  Country: JP (occurrence: JP)
  Receive Date: 20140718
  Receipt Date: 20140805
  Transmission Date: 20150326
  Serious: Yes (Hospitalization)
  Sender: FDA-Public Use
  Company Number: JP-GLAXOSMITHKLINE-B1010987A

PATIENT
  Age: 82 Year
  Sex: Male

DRUGS (5)
  1. DONEPEZIL HYDROCHLORIDE. [Concomitant]
     Active Substance: DONEPEZIL HYDROCHLORIDE
     Indication: DEMENTIA
     Dosage: 5MG PER DAY
     Route: 048
  2. BUFFERIN [Concomitant]
     Active Substance: ASPIRIN
     Dosage: 81MG PER DAY
     Route: 048
  3. VALTREX [Suspect]
     Active Substance: VALACYCLOVIR HYDROCHLORIDE
     Indication: HERPES ZOSTER
     Dosage: 1000MG THREE TIMES PER DAY
     Route: 048
     Dates: start: 20140418, end: 20140425
  4. LYRICA [Suspect]
     Active Substance: PREGABALIN
     Indication: PAIN
     Dosage: 75MG TWICE PER DAY
     Route: 048
     Dates: start: 20140418, end: 20140423
  5. DOMPERIDONE [Concomitant]
     Active Substance: DOMPERIDONE
     Indication: DECREASED APPETITE
     Dosage: 10MG THREE TIMES PER DAY
     Route: 048
     Dates: start: 20140423, end: 20140430

REACTIONS (6)
  - Decreased appetite [Recovered/Resolved]
  - Mobility decreased [Unknown]
  - Renal failure acute [Recovered/Resolved]
  - Encephalopathy [Recovered/Resolved]
  - Blood urea increased [Recovering/Resolving]
  - Blood creatinine increased [Recovering/Resolving]

NARRATIVE: CASE EVENT DATE: 201404
